FAERS Safety Report 9463609 (Version 1)
Quarter: 2013Q3

REPORT INFORMATION
  Report Type: Other
  Country: DE (occurrence: DE)
  Receive Date: 20130819
  Receipt Date: 20130819
  Transmission Date: 20140515
  Serious: Yes (Hospitalization, Other)
  Sender: FDA-Public Use
  Company Number: DE-LUPIN PHARMACEUTICALS INC.-E2B_00001170

PATIENT
  Age: 1 Day
  Sex: Female
  Weight: 2.63 kg

DRUGS (5)
  1. LAMOTRIGIN [Suspect]
     Indication: EPILEPSY
     Route: 064
     Dates: start: 200801
  2. LAMOTRIGIN [Suspect]
     Dosage: 250 MG/D; SINCE 09//2008, 175-0-75 MG/D
     Route: 064
     Dates: start: 20080211, end: 20081017
  3. MORPHIN [Suspect]
     Indication: PAIN
     Route: 064
     Dates: start: 20080926, end: 20081015
  4. EUTHYROX [Concomitant]
     Indication: HYPOTHYROIDISM
     Route: 064
     Dates: start: 20080211, end: 20081017
  5. FOLSAURE [Concomitant]
     Indication: PROPHYLAXIS OF NEURAL TUBE DEFECT
     Route: 064
     Dates: start: 20080211, end: 20081017

REACTIONS (3)
  - Feeding disorder neonatal [Recovered/Resolved]
  - Neonatal tachypnoea [Recovered/Resolved]
  - Hypoglycaemia neonatal [Recovered/Resolved]
